FAERS Safety Report 24055137 (Version 1)
Quarter: 2024Q3

REPORT INFORMATION
  Report Type: Spontaneous
  Country: US (occurrence: None)
  Receive Date: 20240703
  Receipt Date: 20240703
  Transmission Date: 20241017
  Serious: Yes (Other)
  Sender: Public
  Company Number: None

PATIENT
  Age: 30 Year
  Sex: Female
  Weight: 66.6 kg

DRUGS (1)
  1. ALTRENO [Suspect]
     Active Substance: TRETINOIN
     Dates: start: 20240616, end: 20240616

REACTIONS (5)
  - Urticaria [None]
  - Swelling face [None]
  - Application site swelling [None]
  - Adverse drug reaction [None]
  - Inflammation [None]

NARRATIVE: CASE EVENT DATE: 20240616
